FAERS Safety Report 16903272 (Version 1)
Quarter: 2019Q4

REPORT INFORMATION
  Report Type: Spontaneous
  Country: US (occurrence: US)
  Receive Date: 20191009
  Receipt Date: 20191009
  Transmission Date: 20200122
  Serious: No
  Sender: FDA-Public Use
  Company Number: None

PATIENT
  Age: 39 Year
  Sex: Female
  Weight: 63 kg

DRUGS (3)
  1. OXYMETAZOLINE HCI [Suspect]
     Active Substance: OXYMETAZOLINE HYDROCHLORIDE
     Indication: PULMONARY CONGESTION
     Dosage: ?          QUANTITY:2 SPRAY(S);?
     Route: 055
     Dates: start: 20191009, end: 20191009
  2. CEPACOL [Concomitant]
     Active Substance: BENZOCAINE
  3. IBUPROFEN. [Concomitant]
     Active Substance: IBUPROFEN

REACTIONS (8)
  - Nasopharyngitis [None]
  - Nausea [None]
  - Ocular hyperaemia [None]
  - Headache [None]
  - Nasal obstruction [None]
  - Nasal discomfort [None]
  - Influenza like illness [None]
  - Nasal congestion [None]

NARRATIVE: CASE EVENT DATE: 20191009
